FAERS Safety Report 8680053 (Version 2)
Quarter: 2013Q1

REPORT INFORMATION
  Report Type: Spontaneous
  Country: US (occurrence: None)
  Receive Date: 20120706
  Receipt Date: 20130219
  Transmission Date: 20140127
  Serious: Yes (Hospitalization)
  Sender: FDA-Public Use
  Company Number: DSU-2012-05216

PATIENT
  Age: 72 Year
  Sex: Female

DRUGS (5)
  1. OLMESARTAN MEDOXOMIL [Suspect]
     Route: 048
     Dates: end: 200912
  2. OMPERAZOLE (OMEPRAZOLE) (OMEPRAZOLE) [Concomitant]
  3. OS-CAL (CALCIUM CARBONATE) (CALCIUM CARBONATE) [Concomitant]
  4. LOVASTATIN (LOVASTATIN) (LOVASTATIN) [Concomitant]
  5. CAROTENE (BETACAROTENE) (BETACAROTENE) [Concomitant]

REACTIONS (2)
  - WEIGHT DECREASED [None]
  - COLITIS MICROSCOPIC [None]
